FAERS Safety Report 10289884 (Version 2)
Quarter: 2014Q1

REPORT INFORMATION
  Report Type: Spontaneous
  Country: US (occurrence: None)
  Receive Date: 20120817
  Receipt Date: 20130815
  Transmission Date: 20141002
  Serious: Yes (Other)
  Sender: FDA-Public Use
  Company Number: ADR-2012-00924

PATIENT
  Sex: Female

DRUGS (2)
  1. BACLOFEN INTRATHECAL [Suspect]
     Indication: PAIN
  2. BACLOFEN INTRATHECAL [Suspect]
     Indication: PAIN

REACTIONS (8)
  - Convulsion [None]
  - Muscle spasticity [None]
  - Therapeutic response unexpected [None]
  - Weight decreased [None]
  - Oral pruritus [None]
  - Pruritus [None]
  - Paraesthesia [None]
  - Urinary tract infection [None]
